FAERS Safety Report 12609995 (Version 1)
Quarter: 2016Q3

REPORT INFORMATION
  Report Type: Spontaneous
  Country: US (occurrence: None)
  Receive Date: 20160729
  Receipt Date: 20160729
  Transmission Date: 20161109
  Serious: No
  Sender: FDA-Public Use
  Company Number: None

PATIENT
  Age: 77 Year
  Sex: Male
  Weight: 90 kg

DRUGS (1)
  1. ABRAXANE [Suspect]
     Active Substance: PACLITAXEL
     Indication: PANCREATIC CARCINOMA
     Dosage: 254 MG DAYS 1, 8, 15 Q28D INTRAVENOUS DRIP
     Route: 041
     Dates: start: 20160714, end: 20160721

REACTIONS (1)
  - Rash [None]

NARRATIVE: CASE EVENT DATE: 20160728
